FAERS Safety Report 16778984 (Version 1)
Quarter: 2019Q3

REPORT INFORMATION
  Report Type: Spontaneous
  Country: US (occurrence: US)
  Receive Date: 20190906
  Receipt Date: 20190906
  Transmission Date: 20191005
  Serious: No
  Sender: FDA-Public Use
  Company Number: US-ASTRAZENECA-2019SF24574

PATIENT
  Age: 68 Year
  Sex: Female
  Weight: 63.5 kg

DRUGS (4)
  1. ZOMIG [Suspect]
     Active Substance: ZOLMITRIPTAN
     Indication: MIGRAINE
     Dosage: GENERIC5.0MG AS REQUIRED
     Route: 048
     Dates: start: 2016, end: 2016
  2. BOTOX [Concomitant]
     Active Substance: ONABOTULINUMTOXINA
     Indication: MIGRAINE
     Dates: start: 2018
  3. ZOMIG [Suspect]
     Active Substance: ZOLMITRIPTAN
     Indication: MIGRAINE
     Dosage: 5.0MG AS REQUIRED
     Route: 048
     Dates: start: 1998, end: 2016
  4. ZOMIG [Suspect]
     Active Substance: ZOLMITRIPTAN
     Indication: MIGRAINE
     Dosage: 5.0MG AS REQUIRED
     Route: 048
     Dates: start: 2016

REACTIONS (21)
  - Drug ineffective [Unknown]
  - Eye disorder [Unknown]
  - Myalgia [Unknown]
  - Headache [Recovered/Resolved]
  - Feeling abnormal [Recovered/Resolved]
  - Anxiety [Recovered/Resolved]
  - Disorientation [Unknown]
  - Tremor [Recovered/Resolved]
  - Drug hypersensitivity [Recovered/Resolved]
  - Migraine [Recovered/Resolved]
  - Yawning [Recovered/Resolved]
  - Vocal cord disorder [Unknown]
  - Speech disorder [Unknown]
  - Abdominal discomfort [Recovered/Resolved]
  - Migraine [Unknown]
  - Nausea [Unknown]
  - Headache [Recovered/Resolved]
  - Diarrhoea [Recovered/Resolved]
  - Dysgeusia [Recovered/Resolved]
  - Bedridden [Recovered/Resolved]
  - Rash [Recovered/Resolved]

NARRATIVE: CASE EVENT DATE: 2009
